FAERS Safety Report 26158279 (Version 1)
Quarter: 2025Q4

REPORT INFORMATION
  Report Type: Spontaneous
  Country: EU (occurrence: EU)
  Receive Date: 20251215
  Receipt Date: 20251215
  Transmission Date: 20260118
  Serious: Yes (Other)
  Sender: MYLAN
  Company Number: None

PATIENT
  Age: 32 Year
  Sex: Male

DRUGS (16)
  1. PREGABALIN [Suspect]
     Active Substance: PREGABALIN
     Indication: Product used for unknown indication
     Dosage: UNK, 1 BOX
     Dates: start: 20251013, end: 20251013
  2. PREGABALIN [Suspect]
     Active Substance: PREGABALIN
     Dosage: UNK, 1 BOX
     Route: 045
     Dates: start: 20251013, end: 20251013
  3. PREGABALIN [Suspect]
     Active Substance: PREGABALIN
     Dosage: UNK, 1 BOX
     Route: 045
     Dates: start: 20251013, end: 20251013
  4. PREGABALIN [Suspect]
     Active Substance: PREGABALIN
     Dosage: UNK, 1 BOX
     Dates: start: 20251013, end: 20251013
  5. PREGABALIN [Suspect]
     Active Substance: PREGABALIN
     Indication: Product used for unknown indication
     Dosage: UNK, 1 BOX
     Dates: start: 20251013, end: 20251013
  6. PREGABALIN [Suspect]
     Active Substance: PREGABALIN
     Dosage: UNK, 1 BOX
     Route: 045
     Dates: start: 20251013, end: 20251013
  7. PREGABALIN [Suspect]
     Active Substance: PREGABALIN
     Dosage: UNK, 1 BOX
     Route: 045
     Dates: start: 20251013, end: 20251013
  8. PREGABALIN [Suspect]
     Active Substance: PREGABALIN
     Dosage: UNK, 1 BOX
     Dates: start: 20251013, end: 20251013
  9. ALPRAZOLAM [Suspect]
     Active Substance: ALPRAZOLAM
     Indication: Product used for unknown indication
     Dosage: 130 DOSAGE FORM, QD, 1 DF = 1 TABLET
     Dates: start: 20251013, end: 20251013
  10. ALPRAZOLAM [Suspect]
     Active Substance: ALPRAZOLAM
     Dosage: 130 DOSAGE FORM, QD, 1 DF = 1 TABLET
     Route: 045
     Dates: start: 20251013, end: 20251013
  11. ALPRAZOLAM [Suspect]
     Active Substance: ALPRAZOLAM
     Dosage: 130 DOSAGE FORM, QD, 1 DF = 1 TABLET
     Route: 045
     Dates: start: 20251013, end: 20251013
  12. ALPRAZOLAM [Suspect]
     Active Substance: ALPRAZOLAM
     Dosage: 130 DOSAGE FORM, QD, 1 DF = 1 TABLET
     Dates: start: 20251013, end: 20251013
  13. OXAZEPAM [Suspect]
     Active Substance: OXAZEPAM
     Indication: Product used for unknown indication
     Dosage: 900 MILLIGRAM, QD
     Dates: start: 20251013, end: 20251013
  14. OXAZEPAM [Suspect]
     Active Substance: OXAZEPAM
     Dosage: 900 MILLIGRAM, QD
     Route: 045
     Dates: start: 20251013, end: 20251013
  15. OXAZEPAM [Suspect]
     Active Substance: OXAZEPAM
     Dosage: 900 MILLIGRAM, QD
     Route: 045
     Dates: start: 20251013, end: 20251013
  16. OXAZEPAM [Suspect]
     Active Substance: OXAZEPAM
     Dosage: 900 MILLIGRAM, QD
     Dates: start: 20251013, end: 20251013

REACTIONS (4)
  - Suicide attempt [Unknown]
  - Intentional overdose [Unknown]
  - Incorrect route of product administration [Unknown]
  - No adverse event [Unknown]

NARRATIVE: CASE EVENT DATE: 20251013
